FAERS Safety Report 10468497 (Version 1)
Quarter: 2014Q3

REPORT INFORMATION
  Report Type: Spontaneous
  Country: US (occurrence: US)
  Receive Date: 20140922
  Receipt Date: 20140922
  Transmission Date: 20150326
  Serious: No
  Sender: FDA-Public Use
  Company Number: US-ALLERGAN-1312512US

PATIENT
  Age: 12 Year
  Sex: Male

DRUGS (1)
  1. LASTACAFT [Suspect]
     Active Substance: ALCAFTADINE
     Indication: EYE ALLERGY
     Dosage: 1 DROP IN EACH EYE DAILY

REACTIONS (2)
  - Ocular hyperaemia [Unknown]
  - Eye pain [Unknown]
